FAERS Safety Report 8044419-9 (Version None)
Quarter: 2012Q1

REPORT INFORMATION
  Report Type: 
  Country: None (occurrence: None)
  Receive Date: 20120113
  Receipt Date: 20120103
  Transmission Date: 20120608
  Serious: Yes (Death)
  Sender: FDA-Public Use
  Company Number: US-SHIONOGI, INC-2012000056

PATIENT
  Age: 62 Year
  Sex: Female

DRUGS (18)
  1. METFORMIN HCL [Suspect]
     Dosage: UNK
  2. FAMOTIDINE [Suspect]
     Dosage: UNK
  3. FLUTICASONE PROPIONATE W/SALMETEROL [Suspect]
     Dosage: UNK
  4. CLONIDINE [Suspect]
     Dosage: UNK
  5. GABAPENTIN [Suspect]
     Dosage: UNK
  6. ACE INHIBITORS [Suspect]
     Dosage: UNK
  7. METOLAZONE [Suspect]
     Dosage: UNK
  8. FUROSEMIDE [Suspect]
     Dosage: UNK
  9. OMEPRAZOLE [Suspect]
     Dosage: UNK
  10. ALBUTEROL SULFATE AND IPRATROPIUM BROMIDE [Suspect]
     Dosage: UNK
  11. INSULIN [Suspect]
     Dosage: UNK
  12. SALICYLATES NOS [Suspect]
     Dosage: UNK
  13. DOCUSATE [Suspect]
     Dosage: UNK
  14. LOVASTATIN [Suspect]
     Dosage: UNK
  15. AMLODIPINE [Suspect]
     Dosage: UNK
  16. METOPROLOL SUCCINATE [Suspect]
     Dosage: UNK
  17. IRON [Suspect]
     Dosage: UNK
  18. CITALOPRAM HYDROBROMIDE [Suspect]
     Dosage: UNK

REACTIONS (1)
  - DEATH [None]
